FAERS Safety Report 8580067-X (Version None)
Quarter: 2012Q3

REPORT INFORMATION
  Report Type: 
  Country: None (occurrence: None)
  Receive Date: 20120808
  Receipt Date: 20120725
  Transmission Date: 20120928
  Serious: Yes (Other)
  Sender: FDA-Public Use
  Company Number: GB-MYLANLABS-2012S1015223

PATIENT
  Age: 62 Year
  Sex: Female
  Weight: 61.68 kg

DRUGS (2)
  1. SIMVASTATIN [Suspect]
     Indication: BLOOD CHOLESTEROL INCREASED
     Route: 048
     Dates: start: 20120423, end: 20120713
  2. INSULIN [Concomitant]
     Indication: PRODUCT USED FOR UNKNOWN INDICATION

REACTIONS (9)
  - MYALGIA [None]
  - FATIGUE [None]
  - HEADACHE [None]
  - NAUSEA [None]
  - OEDEMA PERIPHERAL [None]
  - DISTURBANCE IN ATTENTION [None]
  - MYOSITIS [None]
  - MEMORY IMPAIRMENT [None]
  - DEPRESSION [None]
